FAERS Safety Report 6503834-2 (Version None)
Quarter: 2009Q4

REPORT INFORMATION
  Report Type: 
  Country: None (occurrence: None)
  Receive Date: 20091217
  Receipt Date: 20091211
  Transmission Date: 20100525
  Serious: Yes (Hospitalization)
  Sender: FDA-Public Use
  Company Number: A0835292A

PATIENT
  Sex: Female

DRUGS (2)
  1. TYKERB [Suspect]
     Indication: DRUG USE FOR UNKNOWN INDICATION
     Dosage: 1250MG PER DAY
     Route: 065
     Dates: start: 20091103, end: 20091113
  2. RADIATION THERAPY [Concomitant]
     Dates: start: 20091109

REACTIONS (4)
  - ASTHENIA [None]
  - DEHYDRATION [None]
  - NAUSEA [None]
  - VOMITING [None]
